FAERS Safety Report 6181317-X (Version None)
Quarter: 2009Q2

REPORT INFORMATION
  Report Type: 
  Country: None (occurrence: None)
  Receive Date: 20090506
  Receipt Date: 20090427
  Transmission Date: 20091009
  Serious: Yes (Hospitalization)
  Sender: FDA-Public Use
  Company Number: JP-BRISTOL-MYERS SQUIBB COMPANY-14574057

PATIENT
  Age: 30 Year
  Sex: Female

DRUGS (5)
  1. ABILIFY [Suspect]
     Indication: SCHIZOPHRENIA
     Dosage: 12MG,QD,27OCT-19NOV08;24MG(24D),QD,20NOV-24DEC08(35D);30MG,QD,25DEC08-26JAN09(33D)
     Route: 048
     Dates: start: 20081226, end: 20090126
  2. LINTON [Concomitant]
     Dosage: DOSE REDUCED TO HALF,1.5MG/D,26DEC08.
     Dates: end: 20090114
  3. SILECE [Concomitant]
     Dosage: DOSE INCREASED TO 6MG/DAY. FORM = TABS
  4. AKINETON [Concomitant]
  5. MEILAX [Concomitant]
     Dates: start: 20070604

REACTIONS (3)
  - DELUSION [None]
  - DRUG INEFFECTIVE [None]
  - HALLUCINATION [None]
